FAERS Safety Report 6335393-1 (Version None)
Quarter: 2009Q3

REPORT INFORMATION
  Report Type: 
  Country: None (occurrence: None)
  Receive Date: 20090831
  Receipt Date: 20090818
  Transmission Date: 20100115
  Serious: Yes (Hospitalization)
  Sender: FDA-Public Use
  Company Number: PHHY2009TW35624

PATIENT
  Age: 58 Year
  Sex: Female

DRUGS (1)
  1. CLOZAPINE [Suspect]
     Indication: SCHIZOPHRENIA
     Dosage: 300 MG/DAY

REACTIONS (8)
  - BAND NEUTROPHIL COUNT DECREASED [None]
  - DYSPNOEA [None]
  - GLASGOW COMA SCALE ABNORMAL [None]
  - LOSS OF CONSCIOUSNESS [None]
  - PYREXIA [None]
  - SOMNOLENCE [None]
  - TACHYCARDIA [None]
  - WHITE BLOOD CELL DISORDER [None]
